FAERS Safety Report 14315039 (Version 3)
Quarter: 2018Q3

REPORT INFORMATION
  Report Type: Report from Study
  Country: US (occurrence: US)
  Receive Date: 20171221
  Receipt Date: 20180815
  Transmission Date: 20181010
  Serious: Yes (Other)
  Sender: FDA-Public Use
  Company Number: US-SA-2017SA107819

PATIENT
  Age: 50 Year
  Sex: Male
  Weight: 165 kg

DRUGS (7)
  1. LISINOPRIL. [Concomitant]
     Active Substance: LISINOPRIL
     Indication: BLOOD PRESSURE ABNORMAL
     Dosage: 10 MG, QD
     Dates: start: 2008
  2. PREVACID [Concomitant]
     Active Substance: LANSOPRAZOLE
     Indication: GASTROOESOPHAGEAL REFLUX DISEASE
     Dosage: 30 MG, BID
     Dates: start: 1990
  3. LEMTRADA [Suspect]
     Active Substance: ALEMTUZUMAB
     Indication: MULTIPLE SCLEROSIS
     Dosage: 12 MG,QD
     Route: 041
     Dates: start: 20170605, end: 20170609
  4. LOVAZA [Concomitant]
     Active Substance: OMEGA-3-ACID ETHYL ESTERS
     Indication: BLOOD CHOLESTEROL
     Dosage: 30 MG, BID
  5. VALACYCLOVIR [VALACICLOVIR] [Concomitant]
     Indication: ANTIVIRAL TREATMENT
     Dosage: 500 MG, BID
     Dates: start: 201705
  6. ZETIA [Concomitant]
     Active Substance: EZETIMIBE
     Indication: BLOOD CHOLESTEROL
     Dosage: 10 MG, QD
  7. NORCO [Concomitant]
     Active Substance: ACETAMINOPHEN\HYDROCODONE BITARTRATE
     Indication: PAIN
     Dosage: 10 MG, PRN

REACTIONS (9)
  - Sinus pain [Recovered/Resolved]
  - Pollakiuria [Recovered/Resolved]
  - Clostridium difficile infection [Recovered/Resolved]
  - Asthenia [Unknown]
  - CD4 lymphocytes abnormal [Unknown]
  - Headache [Unknown]
  - Sinusitis [Recovered/Resolved]
  - Fall [Recovered/Resolved]
  - Rash [Unknown]

NARRATIVE: CASE EVENT DATE: 201706
